FAERS Safety Report 4853065-7 (Version None)
Quarter: 2005Q4

REPORT INFORMATION
  Report Type: 
  Country: None (occurrence: None)
  Receive Date: 20051212
  Receipt Date: 20051124
  Transmission Date: 20060501
  Serious: Yes (Life-Threatening, Hospitalization)
  Sender: FDA-Public Use
  Company Number: WAES 0304NLD00001

PATIENT
  Age: 66 Year
  Sex: Female

DRUGS (8)
  1. VIOXX [Suspect]
     Indication: NEOPLASM PROPHYLAXIS
     Dosage: 25 MG/DAILY/PO
     Route: 048
     Dates: start: 20001208, end: 20030221
  2. ALBUTEROL [Concomitant]
  3. BUDESONIDE [Concomitant]
  4. CALCIUM CARBONATE ( + ) ETIDRONATE [Concomitant]
  5. FORMOTEROL FUMARATE [Concomitant]
  6. IPRATROPIUM BROMIDE [Concomitant]
  7. PREDNISOLONE [Concomitant]
  8. TEMAZEPAM [Concomitant]

REACTIONS (5)
  - DIVERTICULITIS [None]
  - LARGE INTESTINE PERFORATION [None]
  - PERIRECTAL ABSCESS [None]
  - PLEURAL EFFUSION [None]
  - WOUND DEHISCENCE [None]
